FAERS Safety Report 7784025-4 (Version None)
Quarter: 2011Q3

REPORT INFORMATION
  Report Type: 
  Country: None (occurrence: None)
  Receive Date: 20110928
  Receipt Date: 20110923
  Transmission Date: 20111222
  Serious: Yes (Disabling, Other)
  Sender: FDA-Public Use
  Company Number: GB-MERCK-1109GBR00124

PATIENT
  Age: 33 Year
  Sex: Male

DRUGS (1)
  1. PROPECIA [Suspect]
     Indication: ALOPECIA
     Route: 048
     Dates: start: 20110717, end: 20110810

REACTIONS (4)
  - LOSS OF LIBIDO [None]
  - PENILE SIZE REDUCED [None]
  - PROSTATIC DISORDER [None]
  - EJACULATION FAILURE [None]
